FAERS Safety Report 19197199 (Version 1)
Quarter: 2021Q2

REPORT INFORMATION
  Report Type: Spontaneous
  Country: JP (occurrence: JP)
  Receive Date: 20210429
  Receipt Date: 20210429
  Transmission Date: 20210717
  Serious: Yes (Congenital Anomaly, Other)
  Sender: FDA-Public Use
  Company Number: JP-FERRINGPH-2020FE06241

PATIENT

DRUGS (1)
  1. PROPESS [Suspect]
     Active Substance: DINOPROSTONE
     Indication: INDUCTION OF CERVIX RIPENING
     Dosage: 10 MG, ONCE/SINGLE
     Route: 064
     Dates: start: 20200825, end: 20200825

REACTIONS (3)
  - Foetal heart rate deceleration abnormality [Unknown]
  - Foetal heart rate abnormal [Recovered/Resolved]
  - Renal dysplasia [Unknown]

NARRATIVE: CASE EVENT DATE: 20200825
